FAERS Safety Report 5921564-2 (Version None)
Quarter: 2008Q4

REPORT INFORMATION
  Report Type: 
  Country: None (occurrence: None)
  Receive Date: 20081017
  Receipt Date: 20081016
  Transmission Date: 20090506
  Serious: Yes (Other)
  Sender: FDA-Public Use
  Company Number: CA-BRISTOL-MYERS SQUIBB COMPANY-14229777

PATIENT
  Age: 60 Year
  Sex: Male

DRUGS (4)
  1. PRAVACHOL [Suspect]
     Indication: HYPERCHOLESTEROLAEMIA
     Dosage: STARTED WITH 20MG FROM 02MAR05 TO 21MAY05;DOSE WAS INCREASED TO 40MG ON 22-MAY-2005
     Route: 048
     Dates: start: 20050522
  2. DIOVAN [Concomitant]
  3. EZETROL [Concomitant]
  4. RIVOTRIL [Concomitant]

REACTIONS (1)
  - GAMMOPATHY [None]
